FAERS Safety Report 16860692 (Version 1)
Quarter: 2019Q3

REPORT INFORMATION
  Report Type: Spontaneous
  Country: US (occurrence: US)
  Receive Date: 20190927
  Receipt Date: 20190927
  Transmission Date: 20191005
  Serious: No
  Sender: FDA-Public Use
  Company Number: US-KARYOPHARM-2019KPT000413

PATIENT

DRUGS (1)
  1. XPOVIO [Suspect]
     Active Substance: SELINEXOR
     Indication: PRODUCT USED FOR UNKNOWN INDICATION
     Dosage: 80 MG, WEEKLY FOR 3 WEEKS, 1 WEEK OFF
     Dates: start: 20190808

REACTIONS (6)
  - Hypoaesthesia [Unknown]
  - Anaemia [Unknown]
  - Swelling [Unknown]
  - Leukopenia [Unknown]
  - Thrombocytopenia [Unknown]
  - Nausea [Unknown]
